FAERS Safety Report 6848649-0 (Version None)
Quarter: 2010Q3

REPORT INFORMATION
  Report Type: 
  Country: None (occurrence: None)
  Receive Date: 20100716
  Receipt Date: 20100716
  Transmission Date: 20110219
  Serious: Yes (Death)
  Sender: FDA-Public Use
  Company Number: None

PATIENT
  Age: 3 Month
  Sex: Male

DRUGS (1)
  1. CONCENTRATED TYLENOL INFANTS' DYE FREE CHERRY (ACETAMINOPHEN 80MG/0.8M [Suspect]

REACTIONS (8)
  - APNOEIC ATTACK [None]
  - BRAIN OEDEMA [None]
  - CEREBRAL ISCHAEMIA [None]
  - GRAND MAL CONVULSION [None]
  - HYPOXIC-ISCHAEMIC ENCEPHALOPATHY [None]
  - PRODUCT QUALITY ISSUE [None]
  - STATUS EPILEPTICUS [None]
  - SUDDEN INFANT DEATH SYNDROME [None]
